FAERS Safety Report 13491035 (Version 1)
Quarter: 2017Q2

REPORT INFORMATION
  Report Type: Spontaneous
  Country: CN (occurrence: CN)
  Receive Date: 20170427
  Receipt Date: 20170427
  Transmission Date: 20170830
  Serious: Yes (Hospitalization)
  Sender: FDA-Public Use
  Company Number: CN-ELI_LILLY_AND_COMPANY-CN201704008381

PATIENT
  Age: 75 Year
  Sex: Male
  Weight: 70 kg

DRUGS (2)
  1. TALCID [Concomitant]
     Active Substance: HYDROTALCITE
     Indication: PRODUCT USED FOR UNKNOWN INDICATION
     Dosage: UNK, UNKNOWN
     Route: 065
  2. HUMALOG MIX75/25 [Suspect]
     Active Substance: INSULIN LISPRO
     Indication: DIABETES MELLITUS
     Dosage: 20 IU, BID
     Route: 058
     Dates: start: 2012, end: 201704

REACTIONS (3)
  - Diabetic complication [Unknown]
  - Cerebral infarction [Unknown]
  - Abasia [Unknown]

NARRATIVE: CASE EVENT DATE: 201704
